FAERS Safety Report 9828470 (Version 1)
Quarter: 2014Q1

REPORT INFORMATION
  Report Type: Spontaneous
  Country: US (occurrence: US)
  Receive Date: 20140117
  Receipt Date: 20140117
  Transmission Date: 20141002
  Serious: Yes (Other)
  Sender: FDA-Public Use
  Company Number: US-ASTRAZENECA-2014SE03452

PATIENT
  Sex: 0

DRUGS (1)
  1. LIDOCAINE [Suspect]
     Indication: VENTRICULAR ARRHYTHMIA
     Route: 042

REACTIONS (1)
  - Hyperthermia malignant [Unknown]
